FAERS Safety Report 8132174-3 (Version None)
Quarter: 2012Q1

REPORT INFORMATION
  Report Type: 
  Country: None (occurrence: None)
  Receive Date: 20120213
  Receipt Date: 20120209
  Transmission Date: 20120608
  Serious: Yes (Death, Other)
  Sender: FDA-Public Use
  Company Number: CA-PFIZER INC-2011285531

PATIENT
  Age: 10 Year
  Sex: Male

DRUGS (5)
  1. ZYPREXA [Suspect]
     Indication: TOURETTE'S DISORDER
     Dosage: 2.5 MG 1 TABLET IN THE MORNING AND 2 AT BEDTIME
     Route: 048
  2. ZYPREXA [Suspect]
     Indication: AUTISM
  3. CLONIDINE [Concomitant]
     Dosage: 0.1 MG EVERY AFTERNOON AT 4:00PM AS NEEDED
     Route: 048
  4. SERTRALINE HYDROCHLORIDE [Suspect]
     Dosage: 25 MG, 2X/DAY
     Route: 048
  5. METHYLPHENIDATE HCL [Concomitant]
     Dosage: 40 MG, 1X/DAY IN THE MORNING
     Route: 048

REACTIONS (5)
  - DEATH [None]
  - EYELID PTOSIS [None]
  - SOMNOLENCE [None]
  - WEIGHT INCREASED [None]
  - RESPIRATORY DISORDER [None]
